FAERS Safety Report 10796254 (Version 2)
Quarter: 2020Q3

REPORT INFORMATION
  Report Type: Other
  Country: FR (occurrence: FR)
  Receive Date: 20150216
  Receipt Date: 20200731
  Transmission Date: 20201102
  Serious: Yes (Other)
  Sender: FDA-Public Use
  Company Number: FR-ROCHE-1536097

PATIENT

DRUGS (9)
  1. RITUXIMAB. [Suspect]
     Active Substance: RITUXIMAB
     Indication: MANTLE CELL LYMPHOMA REFRACTORY
     Route: 042
  2. DEXAMETHASONE. [Suspect]
     Active Substance: DEXAMETHASONE
     Indication: MANTLE CELL LYMPHOMA REFRACTORY
     Route: 042
  3. CYCLOPHOSPHAMIDE. [Suspect]
     Active Substance: CYCLOPHOSPHAMIDE
     Indication: MANTLE CELL LYMPHOMA REFRACTORY
     Dosage: 250?750 MG/M2
     Route: 042
  4. PREDNISONE. [Suspect]
     Active Substance: PREDNISONE
     Indication: MANTLE CELL LYMPHOMA REFRACTORY
     Route: 048
  5. TEMSIROLIMUS. [Suspect]
     Active Substance: TEMSIROLIMUS
     Indication: MANTLE CELL LYMPHOMA REFRACTORY
     Dosage: (ADMINISTRATED AT D2, 8 AND 15) WERE AS FOLLOWED: 25MG LEVEL 1; 50MG LEVEL 2 AND 75MG LEVEL 3 AND 15
     Route: 042
  6. ARACYTINE [Suspect]
     Active Substance: CYTARABINE
     Indication: MANTLE CELL LYMPHOMA REFRACTORY
     Route: 042
  7. DOXORUBICIN [Suspect]
     Active Substance: DOXORUBICIN
     Indication: MANTLE CELL LYMPHOMA REFRACTORY
     Route: 042
  8. VINCRISTINE [Suspect]
     Active Substance: VINCRISTINE
     Indication: MANTLE CELL LYMPHOMA REFRACTORY
     Route: 042
  9. FLUDARABINE [Suspect]
     Active Substance: FLUDARABINE PHOSPHATE
     Indication: MANTLE CELL LYMPHOMA REFRACTORY
     Route: 042

REACTIONS (12)
  - Febrile neutropenia [Unknown]
  - Acute pulmonary oedema [Unknown]
  - Sepsis [Unknown]
  - Leukopenia [Unknown]
  - Dyspnoea [Unknown]
  - Gastrointestinal haemorrhage [Unknown]
  - Thrombocytopenia [Unknown]
  - Neutropenia [Unknown]
  - Hyperglycaemia [Unknown]
  - Lymphopenia [Unknown]
  - Pneumonia [Unknown]
  - Skin toxicity [Unknown]
